FAERS Safety Report 17235160 (Version 1)
Quarter: 2020Q1

REPORT INFORMATION
  Report Type: Spontaneous
  Country: US (occurrence: US)
  Receive Date: 20200106
  Receipt Date: 20200106
  Transmission Date: 20200409
  Serious: No
  Sender: FDA-Public Use
  Company Number: US-JNJFOC-20191239997

PATIENT
  Sex: Female

DRUGS (1)
  1. MOTRIN INFANTS [Suspect]
     Active Substance: IBUPROFEN
     Indication: ACCIDENTAL EXPOSURE TO PRODUCT
     Route: 065
     Dates: start: 20191222

REACTIONS (3)
  - Accidental exposure to product [Unknown]
  - Failure of child resistant mechanism for pharmaceutical product [Unknown]
  - Eye disorder [Unknown]

NARRATIVE: CASE EVENT DATE: 20191222
